FAERS Safety Report 4279448-4 (Version None)
Quarter: 2004Q1

REPORT INFORMATION
  Report Type: 
  Country: None (occurrence: None)
  Receive Date: 20040123
  Receipt Date: 20040115
  Transmission Date: 20041129
  Serious: Yes (Hospitalization)
  Sender: FDA-Public Use
  Company Number: 2004-01-0674

PATIENT
  Age: 42 Year
  Sex: Male

DRUGS (7)
  1. VIRAFERONPEG (PEG INTERFERON ALFA -2B RECOBINANT) INJECTABLE [Suspect]
     Indication: HEPATITIS C
     Dosage: 100 UG QD
     Dates: start: 20011128, end: 20020101
  2. REBETOL [Suspect]
     Indication: HEPATITIS C
     Dosage: 1000 MG QD ORAL
     Route: 048
     Dates: start: 20011128, end: 20020101
  3. STAVUDINE (DIDEHYDROTHYMIDINE) [Suspect]
     Indication: HIV INFECTION
     Dates: start: 20010401, end: 20020101
  4. ABACAVIR [Suspect]
     Indication: HIV INFECTION
     Dosage: SEE IMAGE
     Dates: start: 20010401, end: 20020101
  5. ABACAVIR [Suspect]
     Indication: HIV INFECTION
     Dosage: SEE IMAGE
     Dates: start: 20010401
  6. ABACAVIR [Suspect]
     Indication: HIV INFECTION
     Dosage: SEE IMAGE
     Dates: start: 20020301
  7. DIDANOSINE [Suspect]
     Indication: HIV INFECTION
     Dates: start: 20010401

REACTIONS (11)
  - ASPARTATE AMINOTRANSFERASE INCREASED [None]
  - DYSPNOEA [None]
  - GAMMA-GLUTAMYLTRANSFERASE INCREASED [None]
  - HAEMODIALYSIS [None]
  - HEPATIC STEATOSIS [None]
  - HEPATOMEGALY [None]
  - LACTIC ACIDOSIS [None]
  - MITOCHONDRIAL TOXICITY [None]
  - PANCREATITIS [None]
  - TACHYPNOEA [None]
  - WEIGHT DECREASED [None]
